FAERS Safety Report 7702139-1 (Version None)
Quarter: 2011Q3

REPORT INFORMATION
  Report Type: 
  Country: None (occurrence: None)
  Receive Date: 20110822
  Receipt Date: 20110802
  Transmission Date: 20111222
  Serious: Yes (Disabling)
  Sender: FDA-Public Use
  Company Number: US-ALLERGAN-1103803US

PATIENT
  Age: 28 Year
  Sex: Female

DRUGS (7)
  1. CELEXA [Concomitant]
     Indication: PRODUCT USED FOR UNKNOWN INDICATION
  2. BOTULINUM TOXIN TYPE A [Suspect]
     Indication: HYPERHIDROSIS
     Dosage: 125 UNK, UNK
     Dates: start: 20020325, end: 20020325
  3. BOTULINUM TOXIN TYPE A [Suspect]
     Dosage: 100 UNK, UNK
     Dates: start: 20010622, end: 20010622
  4. CELEBREX [Concomitant]
     Indication: PRODUCT USED FOR UNKNOWN INDICATION
  5. YASMIN [Concomitant]
     Indication: PRODUCT USED FOR UNKNOWN INDICATION
  6. BOTULINUM TOXIN TYPE A [Suspect]
     Indication: TORTICOLLIS
     Dosage: 290 UNITS, SINGLE
     Route: 030
     Dates: start: 20070612, end: 20070612
  7. VALIUM [Concomitant]
     Indication: PRODUCT USED FOR UNKNOWN INDICATION

REACTIONS (2)
  - NERVOUS SYSTEM DISORDER [None]
  - PAIN [None]
